FAERS Safety Report 6712498-4 (Version None)
Quarter: 2010Q2

REPORT INFORMATION
  Report Type: 
  Country: None (occurrence: None)
  Receive Date: 20100505
  Receipt Date: 20100505
  Transmission Date: 20101027
  Serious: Yes (Other)
  Sender: FDA-Public Use
  Company Number: None

PATIENT
  Sex: Female
  Weight: 59.8748 kg

DRUGS (3)
  1. SINGULAIR [Suspect]
     Dosage: 10MG DAILY ORAL
     Route: 048
     Dates: start: 20060101, end: 20100101
  2. ZYRTEC [Concomitant]
  3. FLONASE [Concomitant]

REACTIONS (6)
  - AFFECTIVE DISORDER [None]
  - ANGER [None]
  - ANXIETY [None]
  - DEPRESSION [None]
  - INSOMNIA [None]
  - IRRITABILITY [None]
